FAERS Safety Report 9057631 (Version 1)
Quarter: 2013Q1

REPORT INFORMATION
  Report Type: Spontaneous
  Country: US (occurrence: US)
  Receive Date: 20130204
  Receipt Date: 20130204
  Transmission Date: 20140127
  Serious: Yes (Other)
  Sender: FDA-Public Use
  Company Number: US-PFIZER INC-2013044113

PATIENT
  Age: 64 Year
  Sex: Female
  Weight: 68.03 kg

DRUGS (1)
  1. LYRICA [Suspect]
     Indication: NERVE COMPRESSION
     Dosage: 100 MG, 2X/DAY
     Dates: start: 2012

REACTIONS (3)
  - Dyspnoea [Not Recovered/Not Resolved]
  - Diarrhoea [Unknown]
  - Insomnia [Unknown]
